FAERS Safety Report 24407454 (Version 1)
Quarter: 2024Q4

REPORT INFORMATION
  Report Type: Report from Study
  Country: EG (occurrence: EG)
  Receive Date: 20241007
  Receipt Date: 20241007
  Transmission Date: 20250114
  Serious: Yes (Other)
  Sender: ALEXION PHARMACEUTICALS
  Company Number: EG-AstraZeneca-2024A212796

PATIENT
  Age: 75 Year

DRUGS (1)
  1. IMFINZI [Suspect]
     Active Substance: DURVALUMAB
     Indication: Cholangiocarcinoma
     Dosage: 1500 MILLIGRAM, Q3W

REACTIONS (5)
  - Hernia [Unknown]
  - Abdominal pain [Unknown]
  - Testicular pain [Unknown]
  - Hypophagia [Unknown]
  - Blood bilirubin increased [Unknown]
